FAERS Safety Report 9441911 (Version 2)
Quarter: 2014Q3

REPORT INFORMATION
  Report Type: Spontaneous
  Country: CN (occurrence: CN)
  Receive Date: 20130806
  Receipt Date: 20140821
  Transmission Date: 20150326
  Serious: Yes (Other)
  Sender: FDA-Public Use
  Company Number: CN-JNJFOC-20130800134

PATIENT
  Age: 3 Decade
  Sex: Male

DRUGS (2)
  1. REMICADE [Suspect]
     Active Substance: INFLIXIMAB
     Indication: ANKYLOSING SPONDYLITIS
     Dosage: FIRST INFUSION
     Route: 042
     Dates: start: 20130714
  2. REMICADE [Suspect]
     Active Substance: INFLIXIMAB
     Indication: ANKYLOSING SPONDYLITIS
     Dosage: SECOND INFUSION
     Route: 042
     Dates: start: 20130730, end: 20130730

REACTIONS (5)
  - Rash generalised [Recovered/Resolved]
  - Infusion related reaction [Recovered/Resolved]
  - Anaphylactic shock [Recovered/Resolved]
  - Laryngeal oedema [Recovered/Resolved]
  - Respiratory depression [Recovered/Resolved]

NARRATIVE: CASE EVENT DATE: 20130730
